FAERS Safety Report 9626817 (Version 1)
Quarter: 2013Q4

REPORT INFORMATION
  Report Type: Spontaneous
  Country: BR (occurrence: BR)
  Receive Date: 20131016
  Receipt Date: 20131016
  Transmission Date: 20140711
  Serious: Yes (Other)
  Sender: FDA-Public Use
  Company Number: BR-ASTRAZENECA-2013SE74879

PATIENT
  Age: 89 Year
  Sex: Male
  Weight: 53 kg

DRUGS (10)
  1. ZOLADEX LA [Suspect]
     Indication: PROSTATE CANCER
     Route: 058
     Dates: start: 201307
  2. ZOLADEX LA [Suspect]
     Indication: PROSTATIC SPECIFIC ANTIGEN INCREASED
     Route: 058
     Dates: start: 201307
  3. DONILA [Suspect]
     Indication: DEMENTIA ALZHEIMER^S TYPE
     Route: 065
     Dates: start: 20130920, end: 20131001
  4. ZARGUS [Suspect]
     Indication: DEMENTIA ALZHEIMER^S TYPE
     Route: 065
     Dates: start: 20130920, end: 20131001
  5. LOSARTAN POTASSIUM [Concomitant]
     Indication: HYPERTENSION
     Dates: start: 2004
  6. AMLODIPINE BESYLATE [Concomitant]
     Indication: HYPERTENSION
     Dates: start: 2004
  7. GLIFAGE [Concomitant]
     Indication: DIABETES MELLITUS
     Dates: start: 2004
  8. SIMVASTATIN [Concomitant]
     Indication: BLOOD CHOLESTEROL INCREASED
     Dates: start: 2004
  9. VITAMIN D [Concomitant]
  10. VITAMIN [Concomitant]
     Indication: ANAEMIA
     Dates: start: 201307

REACTIONS (5)
  - Dementia Alzheimer^s type [Not Recovered/Not Resolved]
  - Asthenia [Recovering/Resolving]
  - Anaemia [Unknown]
  - Application site pain [Unknown]
  - Hallucination [Recovering/Resolving]
